FAERS Safety Report 4270654-1 (Version None)
Quarter: 2004Q1

REPORT INFORMATION
  Report Type: 
  Country: None (occurrence: None)
  Receive Date: 20040114
  Receipt Date: 20010419
  Transmission Date: 20041129
  Serious: Yes (Hospitalization)
  Sender: FDA-Public Use
  Company Number: US-BRISTOL-MYERS SQUIBB COMPANY-10804680

PATIENT
  Age: 83 Year
  Sex: Female
  Weight: 48 kg

DRUGS (11)
  1. ATORVASTATIN [Suspect]
     Dosage: LAST DOSE PRIOR TO EVENT WAS APR-2001.
     Route: 048
     Dates: start: 20010315
  2. GATIFLOXACIN [Suspect]
     Route: 048
     Dates: start: 20010409, end: 20010409
  3. DIABINESE [Suspect]
     Route: 048
     Dates: start: 20001218, end: 20010410
  4. GLUCOTROL XL [Suspect]
     Route: 048
     Dates: start: 20010315
  5. IRON SULFATETHIAMIN COMPOUND TAB [Concomitant]
     Route: 048
     Dates: start: 20010315
  6. HYDRALAZINE HCL [Concomitant]
     Route: 048
     Dates: start: 20001218
  7. PREVACID [Concomitant]
     Route: 048
     Dates: start: 20010315
  8. LASIX [Concomitant]
     Route: 048
     Dates: start: 20010315
  9. ATENOLOL [Concomitant]
     Route: 048
     Dates: start: 20010315
  10. ALTACE [Concomitant]
     Route: 048
     Dates: start: 20010315
  11. ASPIRIN TAB [Concomitant]
     Route: 048
     Dates: start: 20010315

REACTIONS (11)
  - BLOOD GLUCOSE INCREASED [None]
  - BRADYCARDIA [None]
  - CHRONIC OBSTRUCTIVE AIRWAYS DISEASE EXACERBATED [None]
  - COMA [None]
  - CONFUSIONAL STATE [None]
  - DEPRESSED LEVEL OF CONSCIOUSNESS [None]
  - HYPOGLYCAEMIC COMA [None]
  - MARKEDLY REDUCED DIETARY INTAKE [None]
  - METABOLIC ACIDOSIS [None]
  - PNEUMONIA ASPIRATION [None]
  - URINARY TRACT INFECTION [None]
